FAERS Safety Report 8376472-7 (Version None)
Quarter: 2012Q2

REPORT INFORMATION
  Report Type: 
  Country: None (occurrence: None)
  Receive Date: 20120522
  Receipt Date: 20120508
  Transmission Date: 20120825
  Serious: Yes (Death, Other)
  Sender: FDA-Public Use
  Company Number: GR-SANOFI-AVENTIS-2012SA033215

PATIENT

DRUGS (8)
  1. NITROGLYCERIN [Concomitant]
  2. CLOPIDOGREL BISULFATE [Suspect]
     Dosage: GIVEN FOR AT LEAST 2 YEARS
     Route: 048
  3. ASPIRIN [Suspect]
     Indication: THROMBOSIS PROPHYLAXIS
     Dosage: PRETREATMENT
     Route: 065
  4. ASPIRIN [Suspect]
     Dosage: INDEFINITELY
     Route: 065
  5. HEPARIN [Concomitant]
  6. HMG COA REDUCTASE INHIBITORS [Concomitant]
  7. SIROLIMUS [Concomitant]
     Dosage: STENT
     Route: 062
  8. CLOPIDOGREL BISULFATE [Suspect]
     Indication: THROMBOSIS PROPHYLAXIS
     Dosage: PRETREATMENT
     Route: 048

REACTIONS (13)
  - GINGIVAL BLEEDING [None]
  - ANGINA PECTORIS [None]
  - GASTROINTESTINAL HAEMORRHAGE [None]
  - CEREBRAL HAEMORRHAGE [None]
  - THROMBOSIS [None]
  - MYOCARDIAL INFARCTION [None]
  - ACUTE CORONARY SYNDROME [None]
  - THROMBOSIS IN DEVICE [None]
  - CORONARY ARTERY OCCLUSION [None]
  - REOCCLUSION [None]
  - CEREBROVASCULAR ACCIDENT [None]
  - DRUG INEFFECTIVE [None]
  - PETECHIAE [None]
